FAERS Safety Report 6300534-9 (Version None)
Quarter: 2009Q3

REPORT INFORMATION
  Report Type: 
  Country: None (occurrence: None)
  Receive Date: 20090806
  Receipt Date: 20090317
  Transmission Date: 20100115
  Serious: No
  Sender: FDA-Public Use
  Company Number: US-ABBOTT-09P-163-0563358-00

PATIENT
  Sex: Male
  Weight: 70.824 kg

DRUGS (1)
  1. DEPAKOTE ER [Suspect]
     Indication: AUTISM
     Route: 048
     Dates: start: 20080501

REACTIONS (11)
  - CONJUNCTIVITIS INFECTIVE [None]
  - DYSPHAGIA [None]
  - FALL [None]
  - HEAD INJURY [None]
  - INCONTINENCE [None]
  - JOINT INJURY [None]
  - MASS [None]
  - NOCTURIA [None]
  - PNEUMONIA [None]
  - RASH [None]
  - TOOTH FRACTURE [None]
